FAERS Safety Report 11985524 (Version 1)
Quarter: 2016Q1

REPORT INFORMATION
  Report Type: Not Available
  Country: DE (occurrence: DE)
  Receive Date: 20160201
  Receipt Date: 20160201
  Transmission Date: 20160526
  Serious: Yes (Hospitalization)
  Sender: FDA-Public Use
  Company Number: DE-ANIPHARMA-2015-DE-000001

PATIENT
  Age: 62 Year
  Sex: Male

DRUGS (8)
  1. MELPERONE [Suspect]
     Active Substance: MELPERONE
  2. REMERGIL [Suspect]
     Active Substance: MIRTAZAPINE
     Dosage: 7.5 MG
     Route: 048
  3. QUETIAPINE [Concomitant]
     Active Substance: QUETIAPINE
  4. TERAZOSIN [Concomitant]
     Active Substance: TERAZOSIN\TERAZOSIN HYDROCHLORIDE
  5. LORAZEPAM. [Concomitant]
     Active Substance: LORAZEPAM
  6. FLUVOXAMINE (NON-SPECIFIC) [Suspect]
     Active Substance: FLUVOXAMINE
     Dosage: 50 MG
  7. ZYPREXA [Suspect]
     Active Substance: OLANZAPINE
  8. MITRAZAPINE [Concomitant]

REACTIONS (1)
  - Urinary retention [Recovered/Resolved]

NARRATIVE: CASE EVENT DATE: 20141221
